FAERS Safety Report 7761563-1 (Version None)
Quarter: 2011Q3

REPORT INFORMATION
  Report Type: 
  Country: None (occurrence: None)
  Receive Date: 20110920
  Receipt Date: 20110908
  Transmission Date: 20111222
  Serious: Yes (Other)
  Sender: FDA-Public Use
  Company Number: US-BAYER-2011-014911

PATIENT
  Age: 17 Year
  Sex: Female
  Weight: 68 kg

DRUGS (16)
  1. METHYLPHENIDATE [Concomitant]
     Indication: ATTENTION DEFICIT/HYPERACTIVITY DISORDER
     Dosage: 10 MG, UNK
     Route: 048
  2. PROMETHAZINE [Concomitant]
     Dosage: 25 MG, UNK
     Route: 048
  3. RITALIN [Concomitant]
     Dosage: UNK
     Dates: start: 20090201
  4. YAZ [Suspect]
     Dosage: UNK
     Dates: start: 20090901, end: 20100101
  5. AZITHROMYCIN [Concomitant]
     Dosage: 250 MG, UNK
     Route: 048
     Dates: start: 20091222
  6. CIPROFLOXACIN [Concomitant]
     Dosage: 500 MG, UNK
     Route: 048
  7. PHENAZOPYRIDINE HCL TAB [Concomitant]
     Dosage: 100 MG, UNK
     Route: 048
  8. REGLAN [Concomitant]
     Dosage: UNK
     Dates: start: 20090201
  9. EXECOF [Concomitant]
     Route: 048
  10. YAZ [Suspect]
     Indication: CONTRACEPTION
     Dosage: UNK
     Dates: start: 20060101, end: 20081101
  11. METHYLIN [Concomitant]
     Indication: ATTENTION DEFICIT/HYPERACTIVITY DISORDER
     Dosage: 10 MG, UNK
     Route: 048
     Dates: start: 20081231
  12. NEXIUM [Concomitant]
     Dosage: 40 MG, UNK
     Route: 048
  13. IBUPROFEN [Concomitant]
     Dosage: UNK UNK, PRN
     Route: 048
  14. METOCLOPRAMIDE [Concomitant]
     Dosage: 5 MG, UNK
     Route: 048
  15. FLUOXETINE [Concomitant]
     Dosage: 10 MG, UNK
     Route: 048
  16. MULTI-VITAMINS [Concomitant]
     Route: 048

REACTIONS (5)
  - BILIARY DYSKINESIA [None]
  - INJURY [None]
  - THROMBOPHLEBITIS [None]
  - PAIN [None]
  - CHOLECYSTECTOMY [None]
